FAERS Safety Report 9837031 (Version 2)
Quarter: 2017Q4

REPORT INFORMATION
  Report Type: Spontaneous
  Country: US (occurrence: US)
  Receive Date: 20140123
  Receipt Date: 20171115
  Transmission Date: 20180321
  Serious: Yes (Hospitalization)
  Sender: FDA-Public Use
  Company Number: US-PFIZER INC-2014018385

PATIENT
  Age: 73 Year
  Sex: Female
  Weight: 44.44 kg

DRUGS (27)
  1. ULTRAM [Concomitant]
     Active Substance: TRAMADOL HYDROCHLORIDE
     Indication: PAIN
     Dosage: 100 MG, AS NEEDED (3XDAY)
     Route: 048
  2. TOPROL XL [Concomitant]
     Active Substance: METOPROLOL SUCCINATE
     Indication: HYPERTENSION
     Dosage: 25 MG, DAILY (WITH FOOD)
     Route: 048
  3. LYRICA [Suspect]
     Active Substance: PREGABALIN
     Indication: SCOLIOSIS
     Dosage: 100 MG, 3X/DAY
     Route: 048
     Dates: start: 2013
  4. CLOTRIMAZOLE AND BETAMETHASONE [Concomitant]
     Active Substance: BETAMETHASONE\CLOTRIMAZOLE
     Dosage: UNK UNK, 2X/DAY
  5. LYRICA [Suspect]
     Active Substance: PREGABALIN
     Indication: FIBROMYALGIA
     Dosage: 50 MG, 4X/DAY
     Dates: start: 1988
  6. LYRICA [Suspect]
     Active Substance: PREGABALIN
     Indication: PAIN
     Dosage: 20 MG, 2X/DAY
     Route: 048
     Dates: start: 20170626, end: 201707
  7. BENAZEPRIL [Concomitant]
     Active Substance: BENAZEPRIL HYDROCHLORIDE
     Indication: HYPERTENSION
     Dosage: 20 MG, DAILY
  8. TRIAZOLAM. [Concomitant]
     Active Substance: TRIAZOLAM
     Indication: SPINAL DISORDER
  9. AVELOX [Concomitant]
     Active Substance: MOXIFLOXACIN HYDROCHLORIDE
     Indication: ANTIBIOTIC THERAPY
     Dosage: 400 MG, UNK
  10. BENAZEPRIL HCL [Concomitant]
     Active Substance: BENAZEPRIL HYDROCHLORIDE
     Indication: HYPERTENSION
     Dosage: 20 MG, 1X/DAY (EVERY MORNING)
     Route: 048
     Dates: start: 2010
  11. METOPROLOL SUCCINATE. [Concomitant]
     Active Substance: METOPROLOL SUCCINATE
     Indication: HYPERTENSION
     Dosage: 25 MG, 1X/DAY
     Dates: start: 2013
  12. VITAMIN E SKIN CARE [Concomitant]
     Dosage: UNK
     Route: 061
  13. HYDROCORTISONE. [Concomitant]
     Active Substance: HYDROCORTISONE
     Dosage: UNK
  14. FLORAJEN [Concomitant]
     Dosage: UNK
  15. TRAMADOL HCL [Concomitant]
     Active Substance: TRAMADOL HYDROCHLORIDE
     Dosage: 100 MG, 3X/DAY
  16. LYRICA [Suspect]
     Active Substance: PREGABALIN
     Indication: INTERVERTEBRAL DISC DEGENERATION
     Dosage: 100 MG, 1X/DAY (AT NIGHT)
     Route: 048
     Dates: start: 1988
  17. LYRICA [Suspect]
     Active Substance: PREGABALIN
     Dosage: 100 MG, 2X/DAY (2 CAPSULES)
     Dates: start: 20170802
  18. LEVOTHYROXINE SODIUM. [Concomitant]
     Active Substance: LEVOTHYROXINE SODIUM
     Indication: HYPOTHYROIDISM
     Dosage: 50 UG, 1X/DAY 50 UG, 1X/DAY[IN THE MORNING]
     Route: 048
  19. HALCION [Concomitant]
     Active Substance: TRIAZOLAM
     Dosage: 0.5 MG, 1X/DAY (AT BEDTIME)
     Route: 048
  20. TRIAZOLAM. [Concomitant]
     Active Substance: TRIAZOLAM
     Indication: SCOLIOSIS
  21. LYRICA [Suspect]
     Active Substance: PREGABALIN
     Indication: ARTHRALGIA
     Dosage: 250 MG, DAILY (50 MG, 2 AT BEDTIME, THEN 1 THREE TIMES A DAY)
     Route: 048
     Dates: start: 1988
  22. LYRICA [Suspect]
     Active Substance: PREGABALIN
     Indication: OSTEOARTHRITIS
     Dosage: 250 MG, DAILY (50 MG, 2 AT BEDTIME, THEN 1 THREE TIMES A DAY)
     Route: 048
  23. TRIAZOLAM. [Concomitant]
     Active Substance: TRIAZOLAM
     Indication: MUSCLE SPASMS
  24. TRIAZOLAM. [Concomitant]
     Active Substance: TRIAZOLAM
     Indication: INTERVERTEBRAL DISC DEGENERATION
  25. LYRICA [Suspect]
     Active Substance: PREGABALIN
     Dosage: 100 MG, 3X/DAY (6 IN 24 HOUR)
     Route: 048
  26. PRAVASTATIN. [Concomitant]
     Active Substance: PRAVASTATIN
     Dosage: 40 MG, 1X/DAY (AT BED TIME)
     Route: 048
  27. TRIAZOLAM. [Concomitant]
     Active Substance: TRIAZOLAM
     Indication: SPINAL PAIN
     Dosage: 0.25 MG, EVERY 4 HRS
     Route: 048
     Dates: start: 1987

REACTIONS (25)
  - Poor quality sleep [Recovering/Resolving]
  - Back pain [Recovering/Resolving]
  - Abdominal pain upper [Unknown]
  - Intentional product use issue [Unknown]
  - Feeling cold [Not Recovered/Not Resolved]
  - Formication [Recovering/Resolving]
  - Gait disturbance [Unknown]
  - Pain in extremity [Unknown]
  - Rash erythematous [Recovering/Resolving]
  - Chondropathy [Unknown]
  - Urticaria [Recovered/Resolved]
  - Nodule [Recovered/Resolved]
  - Osteoarthritis [Unknown]
  - Pain [Not Recovered/Not Resolved]
  - Chills [Recovering/Resolving]
  - Oedema peripheral [Not Recovered/Not Resolved]
  - Pruritus [Recovering/Resolving]
  - Withdrawal syndrome [Not Recovered/Not Resolved]
  - Night sweats [Not Recovered/Not Resolved]
  - Decreased appetite [Recovering/Resolving]
  - Fall [Unknown]
  - Chest pain [Unknown]
  - Drug ineffective [Not Recovered/Not Resolved]
  - Diarrhoea [Recovering/Resolving]
  - Pain in extremity [Recovering/Resolving]

NARRATIVE: CASE EVENT DATE: 2008
